FAERS Safety Report 8608611 (Version 2)
Quarter: 2014Q1

REPORT INFORMATION
  Report Type: Spontaneous
  Country: US (occurrence: None)
  Receive Date: 20120323
  Receipt Date: 20130305
  Transmission Date: 20141002
  Serious: Yes (Other)
  Sender: FDA-Public Use
  Company Number: 163-21880-11120197

PATIENT
  Age: 74 Year
  Sex: Female

DRUGS (11)
  1. REVLIMID [Suspect]
     Indication: PLASMA CELL MYELOMA
     Dosage: 25 MG, DAILY FOR 21 DAYS, PO
     Route: 048
     Dates: start: 20111016
  2. DEXAMETHASONE [Concomitant]
  3. DABIGATRAN (DABIGATRAN) [Concomitant]
  4. ASPIRIN (ACETYLSALICYLIC ACID) [Concomitant]
  5. LISINOPRIL [Concomitant]
  6. NEBIVOLOL [Concomitant]
  7. FERROUS SULFATE [Concomitant]
  8. ATORVASTATIN [Concomitant]
  9. EZETIMIBE [Concomitant]
  10. OPTHALMIC PRODUCTS (ALL OTHER THERAPEUTIC PRODUCTS) [Concomitant]
  11. MULTIVITAMINS [Concomitant]

REACTIONS (5)
  - Anaemia [None]
  - Viral infection [None]
  - Dizziness [None]
  - Headache [None]
  - Thrombocytopenia [None]
